FAERS Safety Report 6897975-8 (Version None)
Quarter: 2010Q3

REPORT INFORMATION
  Report Type: 
  Country: None (occurrence: None)
  Receive Date: 20100802
  Receipt Date: 20070806
  Transmission Date: 20110219
  Serious: No
  Sender: FDA-Public Use
  Company Number: US-PFIZER INC-2007066431

PATIENT
  Sex: Male
  Weight: 102.1 kg

DRUGS (4)
  1. LYRICA [Suspect]
     Indication: PAIN
  2. LORAZEPAM [Concomitant]
  3. HYDROCODONE BITARTRATE [Concomitant]
  4. CYMBALTA [Concomitant]

REACTIONS (1)
  - VISION BLURRED [None]
